FAERS Safety Report 26140443 (Version 1)
Quarter: 2025Q4

REPORT INFORMATION
  Report Type: Report from Study
  Country: EU (occurrence: EU)
  Receive Date: 20251210
  Receipt Date: 20251210
  Transmission Date: 20260119
  Serious: Yes (Death)
  Sender: ALEXION PHARMACEUTICALS
  Company Number: EU-AstraZeneca-CH-01006275A

PATIENT
  Sex: Female

DRUGS (1)
  1. DURVALUMAB [Suspect]
     Active Substance: DURVALUMAB
     Indication: Non-small cell lung cancer stage IIIB
     Dosage: 1500 MILLIGRAM, QMONTH
     Route: 065
     Dates: start: 20250725, end: 20250924

REACTIONS (1)
  - Death [Fatal]
